FAERS Safety Report 10430053 (Version 1)
Quarter: 2014Q3

REPORT INFORMATION
  Report Type: Report from Study
  Country: US (occurrence: US)
  Receive Date: 20140904
  Receipt Date: 20140904
  Transmission Date: 20150326
  Serious: Yes (Hospitalization)
  Sender: FDA-Public Use
  Company Number: US-SHIRE-US201405527

PATIENT
  Age: 32 Year
  Sex: Male

DRUGS (7)
  1. IDURSULFASE [Suspect]
     Active Substance: IDURSULFASE
     Dosage: 0.51 MG/KG, 1X/WEEK
     Route: 041
     Dates: start: 20100528
  2. IDURSULFASE [Suspect]
     Active Substance: IDURSULFASE
     Indication: MUCOPOLYSACCHARIDOSIS II
     Dosage: UNK, UNKNOWN
     Route: 041
     Dates: start: 20100204
  3. IDURSULFASE [Suspect]
     Active Substance: IDURSULFASE
     Dosage: 0.48 MG/KG, 1X/WEEK
     Route: 041
     Dates: start: 20110926
  4. IDURSULFASE [Suspect]
     Active Substance: IDURSULFASE
     Dosage: 0.46 UNK, 1X/WEEK
     Route: 041
     Dates: start: 20120726
  5. IDURSULFASE [Suspect]
     Active Substance: IDURSULFASE
     Dosage: 0.5 MG/KG, 1X/WEEK
     Route: 041
     Dates: start: 20100719
  6. IDURSULFASE [Suspect]
     Active Substance: IDURSULFASE
     Dosage: 0.47 MG/KG, 1X/WEEK
     Route: 041
     Dates: start: 20120326
  7. OTHER THERAPEUTIC PRODUCTS [Concomitant]
     Active Substance: UNSPECIFIED INGREDIENT
     Indication: PREMEDICATION
     Dosage: UNK, UNKNOWN
     Route: 065
     Dates: start: 20100528

REACTIONS (1)
  - Bronchitis [Unknown]

NARRATIVE: CASE EVENT DATE: 20140419
